FAERS Safety Report 15685787 (Version 3)
Quarter: 2019Q3

REPORT INFORMATION
  Report Type: Spontaneous
  Country: CA (occurrence: CA)
  Receive Date: 20181204
  Receipt Date: 20190910
  Transmission Date: 20191004
  Serious: Yes (Life-Threatening, Other)
  Sender: FDA-Public Use
  Company Number: CA-SA-2018SA327094

PATIENT
  Age: 44 Year
  Sex: Female

DRUGS (17)
  1. MINOCYCLINE HYDROCHLORIDE. [Suspect]
     Active Substance: MINOCYCLINE HYDROCHLORIDE
     Indication: HIDRADENITIS
  2. ISOTRETINOIN. [Suspect]
     Active Substance: ISOTRETINOIN
     Indication: HIDRADENITIS
  3. TETRACYCLINE [Suspect]
     Active Substance: TETRACYCLINE
     Indication: PRODUCT USED FOR UNKNOWN INDICATION
  4. ACZONE [Suspect]
     Active Substance: DAPSONE
     Indication: HIDRADENITIS
     Route: 061
  5. RIFAMPICIN [Suspect]
     Active Substance: RIFAMPIN
     Indication: HIDRADENITIS
     Dosage: 150 MG
  6. TRIAMCINOLONE [Suspect]
     Active Substance: TRIAMCINOLONE
     Indication: HIDRADENITIS
  7. AMOXICILLIN TRIHYDRATE/POTASSIUM CLAVULANATE [Suspect]
     Active Substance: AMOXICILLIN\CLAVULANATE POTASSIUM
     Indication: HIDRADENITIS
  8. NORITATE [Suspect]
     Active Substance: METRONIDAZOLE
     Indication: HIDRADENITIS
     Route: 061
  9. NORITATE [Suspect]
     Active Substance: METRONIDAZOLE
     Dosage: UNK
  10. CLINDAMYCIN PHOSPHATE. [Suspect]
     Active Substance: CLINDAMYCIN PHOSPHATE
     Indication: HIDRADENITIS
     Route: 061
  11. DOXYCYCLINE. [Suspect]
     Active Substance: DOXYCYCLINE
     Indication: HIDRADENITIS
  12. AMOXICILLIN. [Suspect]
     Active Substance: AMOXICILLIN
     Indication: HIDRADENITIS
  13. PREDNISONE. [Suspect]
     Active Substance: PREDNISONE
     Indication: HIDRADENITIS
  14. MOXIFLOXACIN. [Suspect]
     Active Substance: MOXIFLOXACIN
     Indication: HIDRADENITIS
  15. ERTAPENEM. [Suspect]
     Active Substance: ERTAPENEM SODIUM
     Indication: HIDRADENITIS
     Route: 042
  16. CLINDAMYCIN PHOSPHATE. [Suspect]
     Active Substance: CLINDAMYCIN PHOSPHATE
     Dosage: UNK
  17. ZINC. [Suspect]
     Active Substance: ZINC
     Indication: HIDRADENITIS

REACTIONS (11)
  - Scar [Unknown]
  - Skin odour abnormal [Unknown]
  - Drug intolerance [Unknown]
  - Suicidal ideation [Unknown]
  - Skin lesion [Unknown]
  - Treatment failure [Unknown]
  - Pain [Unknown]
  - Mobility decreased [Unknown]
  - Wound secretion [Unknown]
  - Drug ineffective [Unknown]
  - Hidradenitis [Unknown]
